FAERS Safety Report 15736295 (Version 1)
Quarter: 2018Q4

REPORT INFORMATION
  Report Type: Spontaneous
  Country: HU (occurrence: HU)
  Receive Date: 20181218
  Receipt Date: 20181218
  Transmission Date: 20190205
  Serious: Yes (Hospitalization, Other)
  Sender: FDA-Public Use
  Company Number: HU-ALLERGAN-1857917US

PATIENT
  Age: 46 Year
  Sex: Female

DRUGS (1)
  1. LEVONORGESTREL - BP [Suspect]
     Active Substance: LEVONORGESTREL
     Indication: MENORRHAGIA
     Dosage: 20 MICROGRAMS/24 H
     Route: 015
     Dates: start: 201811, end: 20181127

REACTIONS (5)
  - Abdominal pain lower [Unknown]
  - Device dislocation [Recovered/Resolved]
  - Menorrhagia [Unknown]
  - Malaise [Unknown]
  - Muscle spasms [Unknown]
